FAERS Safety Report 5724358-6 (Version None)
Quarter: 2008Q2

REPORT INFORMATION
  Report Type: 
  Country: None (occurrence: None)
  Receive Date: 20080428
  Receipt Date: 20080415
  Transmission Date: 20081010
  Serious: Yes (Other)
  Sender: FDA-Public Use
  Company Number: GXKR2008TR03693

PATIENT
  Age: 48 Year
  Sex: Female

DRUGS (3)
  1. GABAPENTIN [Suspect]
     Indication: POST HERPETIC NEURALGIA
     Dosage: 600 MG, QD
  2. CARBAMAZEPINE [Concomitant]
  3. BOTULINUM TOXIN TYPE A (BOTULINUM TOXIN TYPE A) [Concomitant]

REACTIONS (4)
  - LEUKOCYTOCLASTIC VASCULITIS [None]
  - POST INFLAMMATORY PIGMENTATION CHANGE [None]
  - RASH PRURITIC [None]
  - URTICARIA PAPULAR [None]
